FAERS Safety Report 13940730 (Version 1)
Quarter: 2017Q3

REPORT INFORMATION
  Report Type: Spontaneous
  Country: FR (occurrence: FR)
  Receive Date: 20170906
  Receipt Date: 20170906
  Transmission Date: 20171127
  Serious: Yes (Other)
  Sender: FDA-Public Use
  Company Number: FR-PFIZER INC-2017376871

PATIENT
  Age: 70 Year
  Sex: Female

DRUGS (8)
  1. SULFAMETHOXAZOLE [Suspect]
     Active Substance: SULFAMETHOXAZOLE
     Indication: URINARY TRACT INFECTION
     Dosage: 1 DF, 2X/DAY
     Route: 048
     Dates: start: 20170807, end: 20170813
  2. VESICARE [Suspect]
     Active Substance: SOLIFENACIN SUCCINATE
     Dosage: UNK
     Route: 048
  3. KLIPAL [Suspect]
     Active Substance: ACETAMINOPHEN\CODEINE PHOSPHATE
     Dosage: UNK
     Route: 048
  4. EFFEXOR LP [Suspect]
     Active Substance: VENLAFAXINE HYDROCHLORIDE
     Dosage: UNK
     Route: 048
  5. ALPRAZOLAM. [Concomitant]
     Active Substance: ALPRAZOLAM
     Dosage: UNK
  6. ATARAX [Suspect]
     Active Substance: HYDROXYZINE HYDROCHLORIDE
     Dosage: UNK
     Route: 048
  7. SPASFON [Suspect]
     Active Substance: PHLOROGLUCINOL\1,3,5-TRIMETHOXYBENZENE
     Indication: ABDOMINAL PAIN
     Dosage: 2 DF, 3X/DAY
     Route: 048
     Dates: start: 20170807, end: 20170810
  8. TRIMETHOPRIM. [Suspect]
     Active Substance: TRIMETHOPRIM
     Dosage: 1 DF, 2X/DAY
     Route: 048
     Dates: start: 20170807, end: 20170813

REACTIONS (3)
  - Erythema [Unknown]
  - Photosensitivity reaction [Unknown]
  - Pruritus [Unknown]

NARRATIVE: CASE EVENT DATE: 20170813
